FAERS Safety Report 4887472-3 (Version None)
Quarter: 2006Q1

REPORT INFORMATION
  Report Type: 
  Country: None (occurrence: None)
  Receive Date: 20060118
  Receipt Date: 20060105
  Transmission Date: 20060701
  Serious: Yes (Life-Threatening, Hospitalization)
  Sender: FDA-Public Use
  Company Number: 2006004381

PATIENT
  Age: 60 Year
  Sex: Male

DRUGS (5)
  1. SULFASALAZINE [Suspect]
     Indication: PSORIATIC ARTHROPATHY
     Dosage: 2000 MG (1000 MG, 2 IN 1 D), ORAL
     Route: 048
     Dates: start: 20051001, end: 20051206
  2. DIFLUCAN (FLUCONAZOLE) [Suspect]
     Indication: INFECTION
     Dosage: 2000 MG (1000 MG, 2 IN 1 D), ORAL
     Route: 048
     Dates: start: 20051201, end: 20051201
  3. PREDNISOLONE [Concomitant]
  4. SPESICOR DOS (METOPROLOL SUCCINATE) [Concomitant]
  5. BURANA (IBUPROFEN) [Concomitant]

REACTIONS (7)
  - AGRANULOCYTOSIS [None]
  - ANAL INFECTION [None]
  - ERYTHEMA [None]
  - FUNGAL INFECTION [None]
  - INFECTION [None]
  - NEUTROPENIA [None]
  - ORAL FUNGAL INFECTION [None]
